FAERS Safety Report 5074033-9 (Version None)
Quarter: 2006Q3

REPORT INFORMATION
  Report Type: 
  Country: None (occurrence: None)
  Receive Date: 20060808
  Receipt Date: 20050620
  Transmission Date: 20061208
  Serious: Yes (Hospitalization)
  Sender: FDA-Public Use
  Company Number: US-AMGEN-KDL139668

PATIENT
  Sex: Male

DRUGS (22)
  1. PROCRIT [Suspect]
     Indication: RENAL FAILURE CHRONIC
     Dates: start: 20050301, end: 20050610
  2. ISOSORBIDE DINITRATE [Concomitant]
  3. K-DUR 10 [Concomitant]
  4. LANTUS [Concomitant]
  5. MAGNESIUM OXIDE [Concomitant]
  6. NITRO [Concomitant]
     Route: 060
  7. PLAVIX [Concomitant]
  8. PEPCID [Concomitant]
  9. TUMS [Concomitant]
     Route: 048
  10. SYNTHROID [Concomitant]
  11. RESTORIL [Concomitant]
  12. ZOCOR [Concomitant]
  13. HUMULIN L [Concomitant]
  14. ATARAX [Concomitant]
  15. ATENOLOL [Concomitant]
  16. AMARYL [Concomitant]
  17. ASPIRIN [Concomitant]
  18. DARVOCET [Concomitant]
  19. ETHACRYNIC ACID [Concomitant]
  20. FERROUS SULFATE TAB [Concomitant]
  21. ALPHAGAN [Concomitant]
  22. LASIX [Concomitant]

REACTIONS (2)
  - HYPERSENSITIVITY [None]
  - PRURITUS [None]
